FAERS Safety Report 8427119-2 (Version None)
Quarter: 2012Q2

REPORT INFORMATION
  Report Type: 
  Country: None (occurrence: None)
  Receive Date: 20120611
  Receipt Date: 20120521
  Transmission Date: 20120825
  Serious: Yes (Death)
  Sender: FDA-Public Use
  Company Number: US-ROCHE-770810

PATIENT

DRUGS (2)
  1. MABTHERA [Suspect]
     Indication: B-CELL LYMPHOMA
     Dosage: ON DAYS 1, 8, 15 AND 22
     Route: 065
  2. DENILEUKIN DIFTITOX [Suspect]
     Indication: B-CELL LYMPHOMA
     Dosage: ON DAYS 1-5 EVERY 3 WEEK FOR 3 CYCLES.
     Route: 065

REACTIONS (1)
  - CAPILLARY LEAK SYNDROME [None]
